FAERS Safety Report 12293150 (Version 1)
Quarter: 2016Q2

REPORT INFORMATION
  Report Type: Report from Study
  Country: US (occurrence: US)
  Receive Date: 20160421
  Receipt Date: 20160421
  Transmission Date: 20160815
  Serious: Yes (Other)
  Sender: FDA-Public Use
  Company Number: US-AMGEN-USASL2016045705

PATIENT
  Age: 71 Year
  Sex: Female
  Weight: 64.86 kg

DRUGS (2)
  1. PRAVASTATIN [Concomitant]
     Active Substance: PRAVASTATIN\PRAVASTATIN SODIUM
     Dosage: 20 MG, QD
  2. REPATHA [Suspect]
     Active Substance: EVOLOCUMAB
     Indication: TYPE V HYPERLIPIDAEMIA
     Dosage: 140 MG, Q2WK
     Route: 058
     Dates: start: 20160128

REACTIONS (8)
  - Myalgia [Recovered/Resolved]
  - Hepatomegaly [Unknown]
  - Feeling abnormal [Unknown]
  - Pancreatic enlargement [Unknown]
  - Diarrhoea [Unknown]
  - Muscle spasms [Recovered/Resolved]
  - Skin burning sensation [Recovering/Resolving]
  - Abdominal distension [Unknown]
